FAERS Safety Report 10145492 (Version 3)
Quarter: 2014Q2

REPORT INFORMATION
  Report Type: Spontaneous
  Country: IT (occurrence: IT)
  Receive Date: 20140501
  Receipt Date: 20140625
  Transmission Date: 20141212
  Serious: Yes (Hospitalization)
  Sender: FDA-Public Use
  Company Number: IT-AMGEN-ITASP2014031236

PATIENT
  Age: 58 Year
  Sex: Female
  Weight: 59 kg

DRUGS (2)
  1. ENBREL [Suspect]
     Indication: RHEUMATOID ARTHRITIS
     Dosage: 50 MG, WEEKLY
     Route: 042
     Dates: start: 20070201, end: 20110816
  2. METHOTREXATE [Concomitant]
     Dosage: 10 MG, WEEKLY
     Route: 048

REACTIONS (4)
  - Meningitis aseptic [Recovered/Resolved]
  - Encephalitis [Recovered/Resolved]
  - Epilepsy [Recovered/Resolved]
  - Incorrect route of drug administration [Unknown]
